FAERS Safety Report 22912440 (Version 2)
Quarter: 2023Q4

REPORT INFORMATION
  Report Type: Spontaneous
  Country: US (occurrence: None)
  Receive Date: 20230906
  Receipt Date: 20231010
  Transmission Date: 20240110
  Serious: Yes (Hospitalization, Other)
  Sender: FDA-Public Use
  Company Number: US-Unichem Pharmaceuticals (USA) Inc-UCM202308-001130

PATIENT
  Age: 10 Year
  Sex: Male
  Weight: 68 kg

DRUGS (10)
  1. TOPIRAMATE [Suspect]
     Active Substance: TOPIRAMATE
     Indication: Seizure
  2. TOPIRAMATE [Suspect]
     Active Substance: TOPIRAMATE
     Dates: start: 20220226
  3. DIVALPROEX SODIUM [Suspect]
     Active Substance: DIVALPROEX SODIUM
     Indication: Seizure
  4. CLOBAZAM [Suspect]
     Active Substance: CLOBAZAM
     Indication: Seizure
     Dates: start: 20220416, end: 20220418
  5. DOXEPIN [Suspect]
     Active Substance: DOXEPIN
     Indication: Insomnia
     Dosage: 1.1 MG/KG
     Dates: start: 20210108
  6. DOXEPIN [Suspect]
     Active Substance: DOXEPIN
     Dosage: 2.21 MG/KG
     Dates: start: 20210623
  7. DOXEPIN [Suspect]
     Active Substance: DOXEPIN
     Dosage: 2.94 MG/KG
     Dates: start: 20210623
  8. DOXEPIN [Suspect]
     Active Substance: DOXEPIN
     Dosage: 4.41 MG/KG
     Dates: start: 20210623, end: 20220429
  9. LEVETIRACETAM [Concomitant]
     Active Substance: LEVETIRACETAM
     Indication: Seizure
     Dates: start: 20211106
  10. GUANFACINE [Concomitant]
     Active Substance: GUANFACINE
     Indication: Seizure

REACTIONS (13)
  - Toxicity to various agents [Unknown]
  - Change in seizure presentation [Recovered/Resolved]
  - Cardiotoxicity [Recovering/Resolving]
  - Condition aggravated [Recovered/Resolved]
  - Electrocardiogram QRS complex prolonged [Recovering/Resolving]
  - Neurotoxicity [Recovering/Resolving]
  - Fall [Recovered/Resolved]
  - Drug interaction [Unknown]
  - Confusional state [Recovered/Resolved]
  - Ataxia [Recovered/Resolved]
  - Encephalopathy [Recovered/Resolved]
  - Somnolence [Recovering/Resolving]
  - Drug ineffective [Unknown]
